FAERS Safety Report 5612133-2 (Version None)
Quarter: 2008Q1

REPORT INFORMATION
  Report Type: 
  Country: None (occurrence: None)
  Receive Date: 20080204
  Receipt Date: 20080125
  Transmission Date: 20080703
  Serious: Yes (Other)
  Sender: FDA-Public Use
  Company Number: PHHY2008CA01043

PATIENT

DRUGS (2)
  1. DIOVAN HCT [Suspect]
     Indication: HYPERTENSION
     Dosage: 320 MG
     Route: 048
  2. DIURETICS [Concomitant]
     Indication: HYPERTENSION

REACTIONS (1)
  - URINE ALBUMIN/CREATININE RATIO ABNORMAL [None]
